FAERS Safety Report 11930726 (Version 1)
Quarter: 2016Q1

REPORT INFORMATION
  Report Type: Spontaneous
  Country: US (occurrence: US)
  Receive Date: 20160120
  Receipt Date: 20160120
  Transmission Date: 20160526
  Serious: No
  Sender: FDA-Public Use
  Company Number: US-INCYTE CORPORATION-2015IN003958

PATIENT
  Age: 81 Year
  Sex: Male

DRUGS (7)
  1. JAKAFI [Suspect]
     Active Substance: RUXOLITINIB
     Indication: POLYCYTHAEMIA VERA
     Dosage: 5 MG, BID
     Route: 048
     Dates: start: 20150809
  2. CRESTOR [Concomitant]
     Active Substance: ROSUVASTATIN CALCIUM
  3. VITAMIN D                          /00107901/ [Concomitant]
     Active Substance: ERGOCALCIFEROL
  4. VALSARTAN. [Concomitant]
     Active Substance: VALSARTAN
  5. VITAMINS NOS [Concomitant]
     Active Substance: VITAMINS
  6. BABY ASPIRIN [Concomitant]
     Active Substance: ASPIRIN
  7. CARVEDIOL [Concomitant]
     Active Substance: CARVEDILOL

REACTIONS (1)
  - Pollakiuria [Unknown]

NARRATIVE: CASE EVENT DATE: 20150809
